FAERS Safety Report 7888630-6 (Version None)
Quarter: 2011Q4

REPORT INFORMATION
  Report Type: 
  Country: None (occurrence: None)
  Receive Date: 20111103
  Receipt Date: 20111025
  Transmission Date: 20120403
  Serious: Yes (Hospitalization, Disabling, Other)
  Sender: FDA-Public Use
  Company Number: US-BAYER-2011-011684

PATIENT
  Sex: Female
  Weight: 78.912 kg

DRUGS (8)
  1. LEVOTHYROXINE SODIUM [Concomitant]
     Dosage: 175 ?G, QD
     Dates: start: 20010101
  2. CLARITIN-D 24 HOUR [Concomitant]
     Dosage: UNK UNK, QD
     Dates: start: 20061201, end: 20070301
  3. MOTRIN [Concomitant]
     Dosage: 200 MG, PRN
     Dates: start: 20061201, end: 20070101
  4. NEXIUM [Concomitant]
     Dosage: 40 MG, QD
     Dates: start: 20061001, end: 20070301
  5. YASMIN [Suspect]
     Indication: PREMENSTRUAL SYNDROME
     Dosage: UNK
     Route: 048
     Dates: start: 20060301, end: 20070101
  6. CLARITIN-D 24 HOUR [Concomitant]
     Dosage: UNK, PRN
  7. SINGULAIR [Concomitant]
     Dosage: 10 MG, QD
     Dates: start: 20061201, end: 20070101
  8. LEVOXYL [Concomitant]

REACTIONS (5)
  - DEPRESSION [None]
  - AFFECTIVE DISORDER [None]
  - PULMONARY EMBOLISM [None]
  - ANXIETY [None]
  - DEEP VEIN THROMBOSIS [None]
